FAERS Safety Report 26102950 (Version 1)
Quarter: 2025Q4

REPORT INFORMATION
  Report Type: Report from Study
  Country: EG (occurrence: EG)
  Receive Date: 20251128
  Receipt Date: 20251128
  Transmission Date: 20260117
  Serious: Yes (Life-Threatening, Other)
  Sender: ABBVIE
  Company Number: EG-ABBVIE-6569142

PATIENT
  Sex: Female

DRUGS (1)
  1. RINVOQ [Suspect]
     Active Substance: UPADACITINIB
     Indication: Rheumatoid arthritis
     Dosage: 1 TABLET, FORM STRENGTH: 15 MILLIGRAM
     Route: 048
     Dates: start: 20250716, end: 20250726

REACTIONS (3)
  - Intra-abdominal haematoma [Unknown]
  - Colonic haematoma [Unknown]
  - Haemorrhoidal haemorrhage [Unknown]
